FAERS Safety Report 17608388 (Version 1)
Quarter: 2020Q1

REPORT INFORMATION
  Report Type: Spontaneous
  Country: CN (occurrence: CN)
  Receive Date: 20200331
  Receipt Date: 20200331
  Transmission Date: 20200409
  Serious: Yes (Hospitalization)
  Sender: FDA-Public Use
  Company Number: CN-BAXTER-2020BAX006858

PATIENT
  Age: 15 Year
  Sex: Male
  Weight: 65 kg

DRUGS (7)
  1. 0.9% SODIUM CHLORIDE INJECTION [Suspect]
     Active Substance: SODIUM CHLORIDE
     Indication: MEDICATION DILUTION
     Dosage: HOLOXAN + NS
     Route: 041
     Dates: start: 20200307, end: 20200311
  2. HOLOXAN [Suspect]
     Active Substance: IFOSFAMIDE
     Dosage: HOLOXAN + NS
     Route: 041
     Dates: start: 20200313, end: 20200313
  3. 0.9% SODIUM CHLORIDE INJECTION [Suspect]
     Active Substance: SODIUM CHLORIDE
     Dosage: HOLOXAN + NS
     Route: 041
     Dates: start: 20200313, end: 20200313
  4. 0.9% SODIUM CHLORIDE INJECTION [Suspect]
     Active Substance: SODIUM CHLORIDE
     Dosage: HOLOXAN + NS; DOSE RE-INTRODUCED
     Route: 041
     Dates: start: 202003
  5. HOLOXAN [Suspect]
     Active Substance: IFOSFAMIDE
     Dosage: HOLOXAN + NS; DOSE RE-INTRODUCED
     Route: 041
     Dates: start: 202003
  6. RECOMBINANT HUMAN GRANULOCYTE STIMULATING FACTOR [Concomitant]
     Indication: WHITE BLOOD CELL COUNT DECREASED
     Route: 058
     Dates: start: 20200311
  7. HOLOXAN [Suspect]
     Active Substance: IFOSFAMIDE
     Indication: OSTEOSARCOMA
     Dosage: HOLOXAN + NS
     Route: 041
     Dates: start: 20200307, end: 20200311

REACTIONS (1)
  - Bone marrow failure [Recovering/Resolving]

NARRATIVE: CASE EVENT DATE: 20200313
